FAERS Safety Report 5192181-X (Version None)
Quarter: 2006Q4

REPORT INFORMATION
  Report Type: 
  Country: None (occurrence: None)
  Receive Date: 20061220
  Receipt Date: 20061205
  Transmission Date: 20070319
  Serious: Yes (Hospitalization)
  Sender: FDA-Public Use
  Company Number: 2006S1010176

PATIENT
  Age: 60 Year
  Sex: Male
  Weight: 68.0396 kg

DRUGS (5)
  1. CLOZAPINE [Suspect]
     Indication: SCHIZOPHRENIA
     Dosage: 300 MG; BID; PO
     Route: 048
     Dates: start: 20000101, end: 20061030
  2. LEVOTHYROXINE (CON.) [Concomitant]
  3. OXYBUTYNIN (CON.) [Concomitant]
  4. ATENOLOL (CON.) [Concomitant]
  5. CLONAZEPAM (CON.) [Concomitant]

REACTIONS (2)
  - CARDIAC TAMPONADE [None]
  - PULMONARY EMBOLISM [None]
